FAERS Safety Report 11872211 (Version 1)
Quarter: 2015Q4

REPORT INFORMATION
  Report Type: Spontaneous
  Country: BR (occurrence: BR)
  Receive Date: 20151228
  Receipt Date: 20151228
  Transmission Date: 20160305
  Serious: Yes (Other)
  Sender: FDA-Public Use
  Company Number: BR-PFIZER INC-2015466923

PATIENT
  Age: 54 Year
  Sex: Female

DRUGS (2)
  1. FRONTAL [Suspect]
     Active Substance: ALPRAZOLAM
     Indication: LABYRINTHITIS
  2. FRONTAL [Suspect]
     Active Substance: ALPRAZOLAM
     Indication: DEPRESSION
     Dosage: TWO OR THREE TABLETS PER DAY

REACTIONS (8)
  - Depression [Unknown]
  - Hepatic neoplasm [Unknown]
  - Breast mass [Unknown]
  - Cardiac disorder [Unknown]
  - Metabolic disorder [Unknown]
  - Asthenia [Unknown]
  - Pulmonary mass [Unknown]
  - Diabetes mellitus [Unknown]

NARRATIVE: CASE EVENT DATE: 2014
